FAERS Safety Report 8421787-7 (Version None)
Quarter: 2012Q2

REPORT INFORMATION
  Report Type: 
  Country: None (occurrence: None)
  Receive Date: 20120608
  Receipt Date: 20120528
  Transmission Date: 20120825
  Serious: Yes (Death, Life-Threatening)
  Sender: FDA-Public Use
  Company Number: JP-NOVOPROD-348225

PATIENT
  Age: 62 Year
  Sex: Male
  Weight: 86 kg

DRUGS (7)
  1. VICTOZA [Suspect]
     Indication: TYPE 2 DIABETES MELLITUS
     Dosage: 0.9 MG, QD
     Route: 058
     Dates: start: 20110905
  2. HALCION [Concomitant]
     Dosage: 0.25 MG, QD
     Route: 048
  3. OLMESARTAN MEDOXOMIL [Concomitant]
     Dosage: 40 MG, QD
     Route: 048
     Dates: start: 20050902
  4. LIVALO [Concomitant]
     Dosage: 2 MG, QD
     Route: 048
  5. GLIMICRON [Concomitant]
  6. TRICHLORMETHIAZIDE [Concomitant]
     Dosage: 1 MG, QD
     Route: 048
     Dates: start: 20081230
  7. CALBLOCK [Concomitant]
     Dosage: 16 MG, QD
     Route: 048

REACTIONS (3)
  - CARDIAC HYPERTROPHY [None]
  - GASTRITIS EROSIVE [None]
  - DIABETIC KETOACIDOSIS [None]
